FAERS Safety Report 8451953-6 (Version None)
Quarter: 2012Q2

REPORT INFORMATION
  Report Type: 
  Country: None (occurrence: None)
  Receive Date: 20120620
  Receipt Date: 20120508
  Transmission Date: 20120825
  Serious: No
  Sender: FDA-Public Use
  Company Number: US-VERTEX PHARMACEUTICALS INC.-AE-2012-004338

PATIENT
  Sex: Female
  Weight: 87.622 kg

DRUGS (4)
  1. INCIVEK [Suspect]
     Indication: HEPATITIS C
     Route: 048
     Dates: start: 20120323
  2. RIBAVIRIN [Concomitant]
     Indication: HEPATITIS C
     Route: 048
     Dates: start: 20120323
  3. MICROGESTERIN [Concomitant]
  4. PEGASYS [Concomitant]
     Indication: HEPATITIS C
     Route: 058
     Dates: start: 20120323

REACTIONS (11)
  - ANORECTAL DISCOMFORT [None]
  - PRURITUS [None]
  - DYSPNOEA [None]
  - DRY EYE [None]
  - VISION BLURRED [None]
  - ASTHENOPIA [None]
  - GASTROOESOPHAGEAL REFLUX DISEASE [None]
  - RASH [None]
  - INSOMNIA [None]
  - ANAEMIA [None]
  - HAEMORRHOIDS [None]
